FAERS Safety Report 11455882 (Version 1)
Quarter: 2015Q3

REPORT INFORMATION
  Report Type: Spontaneous
  Country: US (occurrence: US)
  Receive Date: 20150903
  Receipt Date: 20150903
  Transmission Date: 20151125
  Serious: No
  Sender: FDA-Public Use
  Company Number: US-TEVA-590948ACC

PATIENT
  Age: 21 Year
  Sex: Female
  Weight: 54.48 kg

DRUGS (2)
  1. TRI-LINYAH [Concomitant]
     Active Substance: ETHINYL ESTRADIOL\NORGESTIMATE
     Indication: CONTRACEPTION
     Dates: start: 201403
  2. PLAN B ONE-STEP [Suspect]
     Active Substance: LEVONORGESTREL
     Indication: POST COITAL CONTRACEPTION
     Route: 048
     Dates: start: 20150812, end: 20150812

REACTIONS (3)
  - Nausea [Not Recovered/Not Resolved]
  - Dysmenorrhoea [Not Recovered/Not Resolved]
  - Menstruation irregular [Not Recovered/Not Resolved]

NARRATIVE: CASE EVENT DATE: 20150814
